FAERS Safety Report 11544361 (Version 1)
Quarter: 2015Q3

REPORT INFORMATION
  Report Type: Spontaneous
  Country: NZ (occurrence: None)
  Receive Date: 20150923
  Receipt Date: 20150923
  Transmission Date: 20151125
  Serious: Yes (Disabling)
  Sender: FDA-Public Use
  Company Number: None

PATIENT
  Age: 25 Year
  Sex: Female
  Weight: 53 kg

DRUGS (3)
  1. NORTRIPTYLINE [Suspect]
     Active Substance: NORTRIPTYLINE
     Indication: PAIN OF SKIN
     Route: 048
  2. LOVIR [Concomitant]
  3. NORTRIPTYLINE [Suspect]
     Active Substance: NORTRIPTYLINE
     Indication: NERVOUS SYSTEM DISORDER
     Route: 048

REACTIONS (4)
  - Urinary incontinence [None]
  - Urinary retention [None]
  - Urinary tract disorder [None]
  - Pain [None]
